FAERS Safety Report 11591685 (Version 1)
Quarter: 2015Q4

REPORT INFORMATION
  Report Type: Spontaneous
  Country: US (occurrence: US)
  Receive Date: 20151005
  Receipt Date: 20151005
  Transmission Date: 20160304
  Serious: No
  Sender: FDA-Public Use
  Company Number: US-NOVEN PHARMACEUTICALS, INC.-US2015000293

PATIENT
  Age: 67 Year
  Sex: Female

DRUGS (3)
  1. COMBIPATCH [Suspect]
     Active Substance: ESTRADIOL\NORETHINDRONE ACETATE
     Indication: NIGHT SWEATS
  2. SYNTHROID [Concomitant]
     Active Substance: LEVOTHYROXINE SODIUM
  3. COMBIPATCH [Suspect]
     Active Substance: ESTRADIOL\NORETHINDRONE ACETATE
     Indication: HOT FLUSH
     Dosage: 0.05/0.14 MG, 1/WEEK
     Route: 062
     Dates: start: 2010

REACTIONS (4)
  - Wrong technique in product usage process [Unknown]
  - Vaginal haemorrhage [Unknown]
  - Inappropriate schedule of drug administration [Unknown]
  - Muscle spasms [Unknown]

NARRATIVE: CASE EVENT DATE: 201504
